FAERS Safety Report 22298496 (Version 5)
Quarter: 2024Q1

REPORT INFORMATION
  Report Type: Spontaneous
  Country: IN (occurrence: IN)
  Receive Date: 20230509
  Receipt Date: 20240108
  Transmission Date: 20240410
  Serious: Yes (Other)
  Sender: FDA-Public Use
  Company Number: IN-PFIZER INC-2019132056

PATIENT
  Age: 70 Year
  Sex: Female

DRUGS (6)
  1. PALBOCICLIB [Suspect]
     Active Substance: PALBOCICLIB
     Indication: Breast cancer metastatic
     Dosage: 125 MG, CYCLIC (ONCE DAILY X 21 DAYS F/B 7 DAYS OFF)
     Route: 048
     Dates: start: 20170610
  2. PALBOCICLIB [Suspect]
     Active Substance: PALBOCICLIB
     Indication: Breast cancer metastatic
     Dosage: 125 MG ONCE DAILYX21 DAYS, THEN 7 DAYS OFF
     Route: 048
  3. LETROZOLE [Concomitant]
     Active Substance: LETROZOLE
     Dosage: 2.5 MG, 1X/DAY (6 MONTHS)
     Dates: start: 20170222
  4. PAN [Concomitant]
     Dosage: 40 MG, 1X/DAY
  5. CALCIUM CARBONATE\CHOLECALCIFEROL [Concomitant]
     Active Substance: CALCIUM CARBONATE\CHOLECALCIFEROL
     Dosage: 500 MG, 1X/DAY
  6. DENOSUMAB [Concomitant]
     Active Substance: DENOSUMAB
     Dosage: 120 MG, CYCLIC (TO BE GIVEN ONCE IN 6 MONTHS-DUE TODAY AS PER SCHEDULE)
     Route: 058

REACTIONS (19)
  - Osteonecrosis of jaw [Unknown]
  - Sinus operation [Unknown]
  - Second primary malignancy [Unknown]
  - Small intestine carcinoma [Unknown]
  - Bile duct stenosis [Unknown]
  - Actinomycosis [Unknown]
  - Neoplasm recurrence [Unknown]
  - Neoplasm progression [Unknown]
  - Cough [Unknown]
  - Back pain [Unknown]
  - Arthralgia [Unknown]
  - Spinal osteoarthritis [Unknown]
  - Blood creatinine increased [Unknown]
  - Blood uric acid increased [Unknown]
  - Blood calcium increased [Unknown]
  - Blood sodium decreased [Unknown]
  - Blood potassium increased [Unknown]
  - Dysplasia [Unknown]
  - Adenoma benign [Unknown]

NARRATIVE: CASE EVENT DATE: 20210910
